FAERS Safety Report 12601721 (Version 1)
Quarter: 2016Q3

REPORT INFORMATION
  Report Type: Spontaneous
  Country: US (occurrence: None)
  Receive Date: 20160727
  Receipt Date: 20160727
  Transmission Date: 20161109
  Serious: Yes (Other)
  Sender: FDA-Public Use
  Company Number: None

PATIENT
  Age: 66 Year
  Sex: Female
  Weight: 79.83 kg

DRUGS (9)
  1. VITAMINS ONE-A-DAY [Concomitant]
  2. RANITIDINE. [Concomitant]
     Active Substance: RANITIDINE
  3. ESCITALOPRAM, BLUE POINT [Suspect]
     Active Substance: ESCITALOPRAM OXALATE
     Indication: PROPHYLAXIS
     Route: 048
  4. NEBULIZER [Concomitant]
     Active Substance: DEVICE
  5. LORAZEPAM. [Concomitant]
     Active Substance: LORAZEPAM
  6. LEXAPRO [Concomitant]
     Active Substance: ESCITALOPRAM OXALATE
  7. INHALER [Concomitant]
     Active Substance: UNSPECIFIED INGREDIENT
  8. ESCITALOPRAM, BLUE POINT [Suspect]
     Active Substance: ESCITALOPRAM OXALATE
     Indication: ANXIETY
     Route: 048
  9. RISPERDONE [Concomitant]
     Active Substance: RISPERIDONE

REACTIONS (3)
  - Chronic obstructive pulmonary disease [None]
  - Feeling abnormal [None]
  - Seizure [None]

NARRATIVE: CASE EVENT DATE: 2016
